FAERS Safety Report 19840848 (Version 1)
Quarter: 2021Q3

REPORT INFORMATION
  Report Type: Spontaneous
  Country: DE (occurrence: DE)
  Receive Date: 20210916
  Receipt Date: 20210916
  Transmission Date: 20211014
  Serious: Yes (Hospitalization, Other)
  Sender: FDA-Public Use
  Company Number: DE-TEVA-2021-DE-1951594

PATIENT
  Age: 79 Year
  Sex: Female

DRUGS (10)
  1. PANTOPRAZOL [Concomitant]
     Active Substance: PANTOPRAZOLE SODIUM
     Dosage: 80 MILLIGRAM DAILY; 1?0?1?0SUSTAINED?RELEASE TABLETS
     Route: 048
  2. LEVOTHYROXINE SODIUM. [Concomitant]
     Active Substance: LEVOTHYROXINE SODIUM
     Dosage: .5 DOSAGE FORMS DAILY; 25 UG, 0.5?0?0?0
     Route: 048
  3. ENDOFALK CLASSIC [Concomitant]
     Dosage: 2 DOSAGE FORMS DAILY; 1 SACHET, 1?1?0?0, POWDER FOR ORAL SOLUTION
     Route: 048
  4. KREON 25000 [Concomitant]
     Active Substance: PANCRELIPASE
     Dosage: 75000 IU (INTERNATIONAL UNIT) DAILY; 25000 IU, 1?1?1?0,
     Route: 048
  5. OXYCODON [Suspect]
     Active Substance: OXYCODONE
     Route: 048
  6. AMLODIPINE [Concomitant]
     Active Substance: AMLODIPINE BESYLATE
     Dosage: 10 MILLIGRAM DAILY; 1?0?1?0
     Route: 048
  7. ZOPICLONE [Concomitant]
     Active Substance: ZOPICLONE
     Dosage: 7.5 MILLIGRAM DAILY; 0?0?1?0
     Route: 048
  8. ACETYLSALICYLSAEURE [Concomitant]
     Active Substance: ASPIRIN
     Dosage: 100 MILLIGRAM DAILY; 1?0?0?0
     Route: 048
  9. PREGABALIN. [Concomitant]
     Active Substance: PREGABALIN
     Dosage: 300 MILLIGRAM DAILY; 1?0?1?0,
     Route: 048
  10. METAMIZOL [Concomitant]
     Active Substance: METAMIZOLE SODIUM
     Dosage: 3000 MILLIGRAM DAILY; 1?1?1?0, DROPS
     Route: 048

REACTIONS (6)
  - Product administration error [Unknown]
  - Constipation [Unknown]
  - Ileus [Unknown]
  - Vomiting [Unknown]
  - Overdose [Unknown]
  - Abdominal pain upper [Unknown]
